FAERS Safety Report 8780241 (Version 1)
Quarter: 2012Q4

REPORT INFORMATION
  Report Type: 
  Country: US (occurrence: None)
  Receive Date: 20120904
  Receipt Date: 20120904
  Transmission Date: 20130627
  Serious: Yes (Hospitalization)
  Sender: FDA-Public Use
  Company Number: None

PATIENT
  Sex: Female
  Weight: 99.4 kg

DRUGS (3)
  1. CARBOPLATIN [Suspect]
     Dates: end: 20110105
  2. DOCETAXEL (TAXOTERE) [Suspect]
     Dates: end: 20110105
  3. TRASTUZUMAB [Concomitant]
     Dates: end: 20110112

REACTIONS (13)
  - Pancytopenia [None]
  - Seroma [None]
  - Neck pain [None]
  - Cellulitis [None]
  - Diarrhoea [None]
  - Laryngitis [None]
  - Dizziness [None]
  - Fall [None]
  - Presyncope [None]
  - Malaise [None]
  - Hypotension [None]
  - Blood creatinine increased [None]
  - Haemoglobin decreased [None]
